FAERS Safety Report 20456698 (Version 2)
Quarter: 2022Q1

REPORT INFORMATION
  Report Type: Spontaneous
  Country: US (occurrence: US)
  Receive Date: 20220210
  Receipt Date: 20220218
  Transmission Date: 20220424
  Serious: No
  Sender: FDA-Public Use
  Company Number: US-LEADIANT BIOSCIENCES INC-2021STPI000206

PATIENT
  Age: 33 Year
  Sex: Female

DRUGS (2)
  1. CARNITOR [Suspect]
     Active Substance: LEVOCARNITINE
     Indication: Carnitine deficiency
     Dosage: 1 GRAM, BIW
  2. CARNITOR [Suspect]
     Active Substance: LEVOCARNITINE
     Indication: Carnitine deficiency
     Dosage: 330 MILLIGRAM, 3 TO 4 TIMES DAILY

REACTIONS (10)
  - Pain in extremity [Recovered/Resolved]
  - Vertigo [Recovered/Resolved]
  - Vomiting [Recovered/Resolved]
  - Dehydration [Recovered/Resolved]
  - Pyrexia [Recovered/Resolved]
  - Hyperhidrosis [Recovered/Resolved]
  - Seizure [Recovered/Resolved]
  - Tremor [Recovered/Resolved]
  - Immobile [Recovered/Resolved]
  - Loss of consciousness [Recovered/Resolved]
